FAERS Safety Report 21499345 (Version 2)
Quarter: 2022Q4

REPORT INFORMATION
  Report Type: Spontaneous
  Country: DE (occurrence: DE)
  Receive Date: 20221024
  Receipt Date: 20221202
  Transmission Date: 20230113
  Serious: Yes (Other)
  Sender: FDA-Public Use
  Company Number: DE-AMGEN-DEUSP2022179492

PATIENT
  Age: 76 Year
  Sex: Female
  Weight: 58 kg

DRUGS (1)
  1. PROLIA [Suspect]
     Active Substance: DENOSUMAB
     Indication: Osteoporosis postmenopausal
     Dosage: 60 MILLIGRAM, Q6MO
     Route: 058

REACTIONS (9)
  - Small cell lung cancer [Unknown]
  - Chronic kidney disease [Unknown]
  - Tonsillectomy [Unknown]
  - Cataract operation [Unknown]
  - Emphysema [Unknown]
  - Intervertebral disc protrusion [Unknown]
  - Goitre [Unknown]
  - COVID-19 [Unknown]
  - Hypertension [Unknown]

NARRATIVE: CASE EVENT DATE: 20220729
